FAERS Safety Report 10011562 (Version 1)
Quarter: 2014Q1

REPORT INFORMATION
  Report Type: Spontaneous
  Country: JP (occurrence: JP)
  Receive Date: 20140314
  Receipt Date: 20140314
  Transmission Date: 20141002
  Serious: Yes (Hospitalization)
  Sender: FDA-Public Use
  Company Number: PHHY2014JP029625

PATIENT
  Age: 73 Year
  Sex: Female

DRUGS (3)
  1. AFINITOR [Suspect]
     Indication: RENAL CELL CARCINOMA
     Dosage: 5 MG, DAILY
     Route: 048
     Dates: start: 20120812, end: 20130912
  2. DIOVAN [Concomitant]
     Dosage: 80 MG, UNK
     Route: 048
  3. AMLODIPINE [Concomitant]
     Dosage: 5 MG, UNK
     Route: 048

REACTIONS (3)
  - Performance status decreased [Unknown]
  - Hepatic function abnormal [Recovered/Resolved]
  - Decreased appetite [Recovered/Resolved]
